FAERS Safety Report 7706725-4 (Version None)
Quarter: 2011Q3

REPORT INFORMATION
  Report Type: 
  Country: None (occurrence: None)
  Receive Date: 20110824
  Receipt Date: 20110812
  Transmission Date: 20111222
  Serious: Yes (Hospitalization)
  Sender: FDA-Public Use
  Company Number: US-PFIZER INC-2011040742

PATIENT
  Sex: Male
  Weight: 55.75 kg

DRUGS (9)
  1. TEMSIROLIMUS [Suspect]
     Dosage: 53 MG, WEEKLY
     Route: 042
     Dates: start: 20071119, end: 20110211
  2. NASAL SALINE [Concomitant]
     Dosage: 2 SPRAY TO EACH NOSTRIL Q 1 HRS PRN
     Route: 045
     Dates: start: 20100909
  3. SULFAMETHOXAZOLE AND TRIMETHOPRIM [Concomitant]
     Dosage: 15 ML, 2X/DAY
     Route: 048
     Dates: start: 20090403
  4. MULTIVITAMINS AND IRON [Concomitant]
     Dosage: 1 TABLET
     Route: 048
     Dates: start: 20100820
  5. ACYCLOVIR [Concomitant]
     Dosage: 600 MG, 3X/DAY
     Route: 048
     Dates: start: 20110128, end: 20110206
  6. HYDROGEN PEROXIDE [Concomitant]
     Dosage: UNK
     Route: 061
     Dates: start: 20110121, end: 20110218
  7. OXYCODONE [Concomitant]
     Dosage: 5MG AS NEEDED EVERY 6 HOURS
     Route: 048
     Dates: start: 20110204, end: 20110218
  8. TEMSIROLIMUS [Suspect]
     Indication: NEUROBLASTOMA
     Dosage: UNKNOWN DOSE
     Route: 042
     Dates: start: 20071012
  9. EUCERIN CREME [Concomitant]
     Dosage: 1 APPLICATION
     Route: 061
     Dates: start: 20080111

REACTIONS (2)
  - OSTEOMYELITIS [None]
  - LOCALISED INFECTION [None]
